FAERS Safety Report 8686791 (Version 3)
Quarter: 2013Q4

REPORT INFORMATION
  Report Type: Spontaneous
  Country: US (occurrence: US)
  Receive Date: 20120727
  Receipt Date: 20131106
  Transmission Date: 20140711
  Serious: Yes (Death, Hospitalization, Other)
  Sender: FDA-Public Use
  Company Number: US-009507513-1207USA010607

PATIENT
  Sex: Male

DRUGS (7)
  1. SIMVASTATIN TABLETS, USP [Suspect]
     Route: 048
  2. TRADJENTA [Interacting]
  3. ZOCOR [Concomitant]
     Route: 048
  4. LASIX (FUROSEMIDE) [Concomitant]
  5. CIPRO [Concomitant]
  6. TOPROL XL TABLETS [Concomitant]
  7. ARB IB [Concomitant]

REACTIONS (4)
  - Acute respiratory distress syndrome [Fatal]
  - Renal failure [Fatal]
  - Rhabdomyolysis [Fatal]
  - Potentiating drug interaction [Fatal]
